FAERS Safety Report 6223138-5 (Version None)
Quarter: 2009Q2

REPORT INFORMATION
  Report Type: 
  Country: None (occurrence: None)
  Receive Date: 20090611
  Receipt Date: 20090603
  Transmission Date: 20091009
  Serious: Yes (Death, Other)
  Sender: FDA-Public Use
  Company Number: PL-CELGENEUS-129-20785-09060533

PATIENT

DRUGS (2)
  1. THALOMID [Suspect]
     Route: 048
  2. FLUDARABINE PHOSPHATE [Suspect]
     Route: 051

REACTIONS (8)
  - ANAEMIA HAEMOLYTIC AUTOIMMUNE [None]
  - CONSTIPATION [None]
  - DEEP VEIN THROMBOSIS [None]
  - DERMATITIS ALLERGIC [None]
  - FATIGUE [None]
  - INFECTION [None]
  - NEUROPATHY PERIPHERAL [None]
  - TUMOUR FLARE [None]
